FAERS Safety Report 10965886 (Version 1)
Quarter: 2015Q1

REPORT INFORMATION
  Report Type: Spontaneous
  Country: US (occurrence: None)
  Receive Date: 20150226
  Receipt Date: 20150226
  Transmission Date: 20150721
  Serious: No
  Sender: FDA-Public Use
  Company Number: TPA2010A04776

PATIENT
  Sex: Male

DRUGS (3)
  1. ULORIC [Suspect]
     Active Substance: FEBUXOSTAT
     Indication: BLOOD URIC ACID INCREASED
     Route: 048
     Dates: start: 201005
  2. PREDNISONE (PREDNISONE) [Concomitant]
     Active Substance: PREDNISONE
  3. ULORIC [Suspect]
     Active Substance: FEBUXOSTAT
     Indication: GOUT
     Route: 048
     Dates: start: 201005

REACTIONS (3)
  - Pain in extremity [None]
  - Paraesthesia [None]
  - Muscle twitching [None]

NARRATIVE: CASE EVENT DATE: 2010
